FAERS Safety Report 4959874-8 (Version None)
Quarter: 2006Q1

REPORT INFORMATION
  Report Type: 
  Country: None (occurrence: None)
  Receive Date: 20060324
  Receipt Date: 20060321
  Transmission Date: 20060701
  Serious: Yes (Life-Threatening, Hospitalization)
  Sender: FDA-Public Use
  Company Number: HQWYE469022MAR06

PATIENT
  Age: 55 Year
  Sex: Male

DRUGS (7)
  1. TIGECYCLINE (TIGECYCLINE, INJECTION) [Suspect]
     Indication: PNEUMONIA
     Dosage: 100 MG LOADING THEN 50 MG EVERY 12 HOURS INTRAVENOUS
     Route: 042
     Dates: start: 20060318, end: 20060320
  2. ALBUMIN (HUMAN) [Concomitant]
  3. INSULIN (INSULIN) [Concomitant]
  4. BAMBUTEROL (BAMBUTEROL) [Concomitant]
  5. AMBROXOL (AMBROXOL) [Concomitant]
  6. XOPENEX [Concomitant]
  7. IPRATROPIUM BROMIDE [Concomitant]

REACTIONS (1)
  - THROMBOCYTOPENIA [None]
